FAERS Safety Report 4346995-6 (Version None)
Quarter: 2004Q1

REPORT INFORMATION
  Report Type: 
  Country: None (occurrence: None)
  Receive Date: 20040325
  Receipt Date: 20040202
  Transmission Date: 20041129
  Serious: No
  Sender: FDA-Public Use
  Company Number: USA040258103

PATIENT
  Age: 81 Year
  Sex: Female
  Weight: 56 kg

DRUGS (5)
  1. FORTEO [Suspect]
     Indication: OSTEOPOROSIS
     Dates: start: 20040114
  2. TIAZAC [Concomitant]
  3. PRILOSEC [Concomitant]
  4. COZAAR [Concomitant]
  5. ASPIRIN [Concomitant]

REACTIONS (3)
  - CHILLS [None]
  - NAUSEA [None]
  - PYREXIA [None]
